FAERS Safety Report 11951649 (Version 1)
Quarter: 2016Q1

REPORT INFORMATION
  Report Type: Spontaneous
  Country: US (occurrence: US)
  Receive Date: 20160126
  Receipt Date: 20160126
  Transmission Date: 20160526
  Serious: No
  Sender: FDA-Public Use
  Company Number: US-DEXPHARM-20152015

PATIENT
  Age: 65 Year
  Sex: Male
  Weight: 92.97 kg

DRUGS (4)
  1. ACTOS [Concomitant]
     Active Substance: PIOGLITAZONE HYDROCHLORIDE
     Dates: start: 2011
  2. OMEPRAZOLE DELAYED RELEASE [Suspect]
     Active Substance: OMEPRAZOLE
     Indication: GASTROOESOPHAGEAL REFLUX DISEASE
     Route: 048
     Dates: start: 2010
  3. SIMVASTATIN. [Concomitant]
     Active Substance: SIMVASTATIN
     Dates: start: 2009
  4. DICLOFENAC [Concomitant]
     Active Substance: DICLOFENAC
     Dates: start: 2005

REACTIONS (5)
  - Urticaria [Recovered/Resolved]
  - Lip swelling [Recovered/Resolved]
  - Hypoaesthesia oral [Recovered/Resolved]
  - Erythema [Recovered/Resolved]
  - Pruritus [Recovered/Resolved]

NARRATIVE: CASE EVENT DATE: 201503
